FAERS Safety Report 24159517 (Version 1)
Quarter: 2024Q3

REPORT INFORMATION
  Report Type: Spontaneous
  Country: GB (occurrence: GB)
  Receive Date: 20240731
  Receipt Date: 20240731
  Transmission Date: 20241017
  Serious: Yes (Other)
  Sender: MERCK
  Company Number: None

PATIENT
  Age: 84 Year
  Sex: Female

DRUGS (12)
  1. PEMBROLIZUMAB [Suspect]
     Active Substance: PEMBROLIZUMAB
  2. ATORVASTATIN [Concomitant]
     Active Substance: ATORVASTATIN
     Dosage: AT NIGHT
  3. BISOPROLOL [Concomitant]
     Active Substance: BISOPROLOL\BISOPROLOL FUMARATE
  4. NITROGLYCERIN [Concomitant]
     Active Substance: NITROGLYCERIN
     Dosage: ONE OR TWO DOSES UNDER TONGUE AND THEN CLOSE MOUTH AS DIRECTED. FORMULATION: SUBLINGUAL SPRAY SOLUTI
     Route: 060
  5. CALCIUM\CHOLECALCIFEROL [Concomitant]
     Active Substance: CALCIUM\CHOLECALCIFEROL
     Dosage: 1 CHEWABLE TABLET DAILY, FREQ: QD
  6. BALNEUM PLUS [LAUROMACROGOL 400;UREA] [Concomitant]
  7. SOLIFENACIN [Concomitant]
     Active Substance: SOLIFENACIN
     Dosage: 5 MILLIGRAM DAILY, FREQ: QD
  8. APIXABAN [Concomitant]
     Active Substance: APIXABAN
     Dosage: 2.5 MILLIGRAM, FREQ: Q12H
  9. FOLIC ACID [Concomitant]
     Active Substance: FOLIC ACID
     Dosage: 5 MILLIGRAM DAILY, FREQ: QD
  10. DAPAGLIFLOZIN [Concomitant]
     Active Substance: DAPAGLIFLOZIN
     Dosage: 10 MILLIGRAM, FREQ: QD
  11. LEVOTHYROXINE [Concomitant]
     Active Substance: LEVOTHYROXINE\LEVOTHYROXINE SODIUM
     Dosage: EACH MORNING PREFERABLY 30  - 60 MINUTES BEFORE BREAKFAST, CAFFEINE - CONTAINING DRINKS OR OTHER MED
  12. AMLODIPINE [Concomitant]
     Active Substance: AMLODIPINE BESYLATE
     Dosage: 10 MILLIGRAM, FREQ: QD

REACTIONS (2)
  - Lip swelling [Unknown]
  - Rash [Unknown]
